FAERS Safety Report 11703915 (Version 3)
Quarter: 2015Q4

REPORT INFORMATION
  Report Type: Spontaneous
  Country: CN (occurrence: CN)
  Receive Date: 20151106
  Receipt Date: 20151124
  Transmission Date: 20160304
  Serious: Yes (Other)
  Sender: FDA-Public Use
  Company Number: CN-ACCORD-035108

PATIENT
  Age: 52 Year
  Sex: Female

DRUGS (2)
  1. MINOCYCLINE\MINOCYCLINE HYDROCHLORIDE [Concomitant]
     Active Substance: MINOCYCLINE\MINOCYCLINE HYDROCHLORIDE
     Indication: ROSACEA
     Dosage: ENTERIC-COATED MINOCYCLINE HYDROCHLORIDE
  2. TACROLIMUS. [Suspect]
     Active Substance: TACROLIMUS
     Indication: ROSACEA

REACTIONS (1)
  - Kaposi^s varicelliform eruption [Recovered/Resolved]

NARRATIVE: CASE EVENT DATE: 20141122
